FAERS Safety Report 6449194-7 (Version None)
Quarter: 2009Q4

REPORT INFORMATION
  Report Type: 
  Country: None (occurrence: None)
  Receive Date: 20091120
  Receipt Date: 20091109
  Transmission Date: 20100525
  Serious: Yes (Hospitalization, Other)
  Sender: FDA-Public Use
  Company Number: PHHY2009FR29584

PATIENT
  Age: 20 Month
  Sex: Female

DRUGS (12)
  1. BASILIXIMAB [Suspect]
     Indication: RENAL TRANSPLANT
     Dosage: 10 MG
  2. BASILIXIMAB [Suspect]
     Dosage: 10 MG
  3. CYCLOSPORINE [Suspect]
     Indication: RENAL TRANSPLANT
     Dosage: 200 MG/M2 PER DAY
  4. MYCOPHENOLATE MOFETIL [Suspect]
     Indication: RENAL TRANSPLANT
     Dosage: 800 MG/M2 PER DAY
  5. MYCOPHENOLATE MOFETIL [Suspect]
     Dosage: 1000 MG/M2 PER DAY
  6. MYCOPHENOLATE MOFETIL [Suspect]
     Dosage: 1200 MG/M2 PER DAY
  7. MYCOPHENOLATE MOFETIL [Suspect]
     Dosage: 1200 MG/M2 PER DAY
  8. PREDNISONE [Suspect]
     Indication: RENAL TRANSPLANT
     Dosage: 60 MG/M2 PER DAY
  9. PREDNISONE [Suspect]
     Dosage: 8 MG/DAY
  10. PREDNISONE [Suspect]
     Dosage: 10 MG/DAY
  11. AMPHOTERICIN B [Concomitant]
     Indication: ANTIFUNGAL PROPHYLAXIS
     Route: 048
  12. CO-TRIMOXAZOLE [Concomitant]
     Indication: ANTIFUNGAL PROPHYLAXIS
     Dosage: UNK

REACTIONS (10)
  - ANAEMIA [None]
  - DIARRHOEA [None]
  - FEELING ABNORMAL [None]
  - GASTROINTESTINAL TOXICITY [None]
  - HAEMOLYSIS [None]
  - HUMAN HERPESVIRUS 6 INFECTION [None]
  - KIDNEY TRANSPLANT REJECTION [None]
  - LEUKOPENIA [None]
  - PYREXIA [None]
  - WEIGHT DECREASED [None]
